FAERS Safety Report 19468495 (Version 1)
Quarter: 2021Q2

REPORT INFORMATION
  Report Type: Spontaneous
  Country: GB (occurrence: GB)
  Receive Date: 20210628
  Receipt Date: 20210628
  Transmission Date: 20210717
  Serious: Yes (Disabling)
  Sender: FDA-Public Use
  Company Number: GB-TEVA-2021-GB-1926513

PATIENT
  Age: 74 Year
  Sex: Female
  Weight: 62 kg

DRUGS (8)
  1. PHENOXYMETHYLPENICILLIN [Concomitant]
     Active Substance: PENICILLIN V
     Dosage: 8 DOSAGE FORMS DAILY; FOR 10 DAYS, UNIT DOSE : 2 DOSAGE FORMS
     Dates: start: 20210601, end: 20210611
  2. NYSTAN [Concomitant]
     Active Substance: NYSTATIN
     Dosage: 4 ML DAILY; DROP 1ML INTO MOUTH FOUR TIMES A DAY FOR 7 DAYS...UNIT DOSE : 1 ML
     Dates: start: 20210601, end: 20210608
  3. VENTOLIN [Concomitant]
     Active Substance: ALBUTEROL SULFATE
     Dosage: INHALE 1 OR 2 DOSES FOUR AS NEEDED
     Dates: start: 20191031
  4. ROSUVASTATIN. [Concomitant]
     Active Substance: ROSUVASTATIN
     Dosage: 1 DOSAGE FORMS DAILY; AT NIGHT (MEDIUM INTENSITY STATIN)
     Dates: start: 20210512, end: 20210609
  5. BEZAFIBRATE [Concomitant]
     Active Substance: BEZAFIBRATE
     Dosage: 1 DOSAGE FORMS DAILY;
     Dates: start: 20210303, end: 20210330
  6. FEXOFENADINE [Concomitant]
     Active Substance: FEXOFENADINE HYDROCHLORIDE
     Dosage: 1 DOSAGE FORMS DAILY;
     Dates: start: 20210601
  7. FENOFIBRATE. [Suspect]
     Active Substance: FENOFIBRATE
     Dosage: 1 DOSAGE FORMS DAILY;
     Route: 065
     Dates: start: 20210518, end: 20210616
  8. MOMETASONE [Concomitant]
     Active Substance: MOMETASONE
     Dosage: 4 DOSAGE FORMS DAILY; TWO SPRAYS IN EACH NOSTRIL ONCE DAILY. REDUCE T...
     Route: 045
     Dates: start: 20210601

REACTIONS (3)
  - Lip swelling [Recovering/Resolving]
  - Pharyngeal swelling [Unknown]
  - Rash [Unknown]

NARRATIVE: CASE EVENT DATE: 20210616
